FAERS Safety Report 23438289 (Version 1)
Quarter: 2024Q1

REPORT INFORMATION
  Report Type: Spontaneous
  Country: US (occurrence: US)
  Receive Date: 20240124
  Receipt Date: 20240124
  Transmission Date: 20240409
  Serious: No
  Sender: FDA-Public Use
  Company Number: US-PFIZER INC-202400019645

PATIENT
  Age: 63 Year
  Sex: Male

DRUGS (2)
  1. PAXLOVID [Suspect]
     Active Substance: NIRMATRELVIR\RITONAVIR
     Indication: COVID-19 treatment
     Dosage: UNK
     Dates: start: 20240109, end: 20240113
  2. ROSUVASTATIN [Concomitant]
     Active Substance: ROSUVASTATIN
     Dosage: UNK
     Dates: start: 202101, end: 202401

REACTIONS (5)
  - Nasopharyngitis [Recovering/Resolving]
  - Headache [Recovering/Resolving]
  - Cough [Recovering/Resolving]
  - Rhinorrhoea [Recovering/Resolving]
  - Sneezing [Recovering/Resolving]

NARRATIVE: CASE EVENT DATE: 20240117
